FAERS Safety Report 26076793 (Version 1)
Quarter: 2025Q4

REPORT INFORMATION
  Report Type: Report from Study
  Country: US (occurrence: None)
  Receive Date: 20251121
  Receipt Date: 20251121
  Transmission Date: 20260118
  Serious: Yes (Hospitalization)
  Sender: UCB
  Company Number: US-UCBSA-2025056838

PATIENT
  Age: 51 Year

DRUGS (2)
  1. BIMEKIZUMAB [Suspect]
     Active Substance: BIMEKIZUMAB
     Indication: Psoriasis
     Dosage: 320 MILLIGRAM, EV 2 WEEKS(QOW)
  2. BIMEKIZUMAB [Suspect]
     Active Substance: BIMEKIZUMAB
     Indication: Hidradenitis
     Dosage: 320 MILLIGRAM, EV 4 WEEKS, WEEKS 0,4,8,12,16 AND THEN 1 X 320 MG /2ML EVERY 8 WEEKS

REACTIONS (14)
  - Psoriasis [Recovering/Resolving]
  - Sepsis [Recovering/Resolving]
  - Staphylococcal infection [Unknown]
  - Gout [Unknown]
  - Renal disorder [Recovering/Resolving]
  - Liver injury [Unknown]
  - Peripheral swelling [Unknown]
  - Abscess [Unknown]
  - Surgery [Unknown]
  - Localised infection [Unknown]
  - Osteomyelitis [Unknown]
  - Condition aggravated [Not Recovered/Not Resolved]
  - Hidradenitis [Not Recovered/Not Resolved]
  - Stress [Not Recovered/Not Resolved]
